FAERS Safety Report 7527149-9 (Version None)
Quarter: 2011Q2

REPORT INFORMATION
  Report Type: 
  Country: None (occurrence: None)
  Receive Date: 20110607
  Receipt Date: 20110530
  Transmission Date: 20111010
  Serious: Yes (Other)
  Sender: FDA-Public Use
  Company Number: FR-BIOGENIDEC-2011BI019962

PATIENT
  Age: 41 Year
  Sex: Female

DRUGS (5)
  1. DEPAKENE [Concomitant]
  2. KEPPRA [Concomitant]
  3. VESICARE [Concomitant]
  4. TYSABRI [Suspect]
     Indication: MULTIPLE SCLEROSIS
     Route: 042
     Dates: start: 20081209
  5. TAMSULOSIN HCL [Concomitant]

REACTIONS (1)
  - SKIN NEOPLASM EXCISION [None]
